FAERS Safety Report 7082187-8 (Version None)
Quarter: 2010Q4

REPORT INFORMATION
  Report Type: 
  Country: None (occurrence: None)
  Receive Date: 20101103
  Receipt Date: 20101026
  Transmission Date: 20110411
  Serious: Yes (Hospitalization, Other)
  Sender: FDA-Public Use
  Company Number: US-ABBOTT-10P-163-0653889-00

PATIENT
  Sex: Female
  Weight: 88.53 kg

DRUGS (8)
  1. NIASPAN [Suspect]
     Indication: HYPERLIPIDAEMIA
     Route: 048
     Dates: start: 20080101
  2. ASPIRIN [Concomitant]
     Indication: PRODUCT USED FOR UNKNOWN INDICATION
     Route: 048
  3. METOPROLOL [Concomitant]
     Indication: HYPERTENSION
  4. DIOVAN [Concomitant]
     Indication: HYPERTENSION
  5. CENTRUM PERFORMANCE [Concomitant]
     Indication: PRODUCT USED FOR UNKNOWN INDICATION
  6. FISH OIL [Concomitant]
     Indication: BLOOD CHOLESTEROL INCREASED
  7. CALCIUM [Concomitant]
     Indication: MINERAL SUPPLEMENTATION
     Dosage: 500-1500MG
  8. REMIFEMIN [Concomitant]
     Indication: MENOPAUSE

REACTIONS (16)
  - ABDOMINAL PAIN [None]
  - ANXIETY [None]
  - ASTHENIA [None]
  - BACK PAIN [None]
  - BLOOD GLUCOSE INCREASED [None]
  - BLOOD PRESSURE INCREASED [None]
  - CHEST PAIN [None]
  - CHOLELITHIASIS [None]
  - CHROMATURIA [None]
  - FEELING HOT [None]
  - FLUSHING [None]
  - HYPOAESTHESIA [None]
  - LISTLESS [None]
  - PARAESTHESIA [None]
  - PERIPHERAL COLDNESS [None]
  - SENSORY LOSS [None]
